FAERS Safety Report 7787793-0 (Version None)
Quarter: 2011Q3

REPORT INFORMATION
  Report Type: 
  Country: None (occurrence: None)
  Receive Date: 20110930
  Receipt Date: 20110921
  Transmission Date: 20111222
  Serious: Yes (Life-Threatening)
  Sender: FDA-Public Use
  Company Number: JP-BRISTOL-MYERS SQUIBB COMPANY-16107716

PATIENT
  Age: 74 Year
  Sex: Male
  Weight: 62 kg

DRUGS (15)
  1. ERBITUX [Suspect]
     Indication: COLON CANCER
     Dosage: 670MG:28JUL09 420MG:4-11AUG09(REDU) 670MG:8SP09 420MG:15SP09-ONG ALL DOSES INCLUDING SKIPPED WK
     Route: 042
     Dates: start: 20090728
  2. GRANISETRON [Concomitant]
     Indication: PREMEDICATION
     Route: 042
     Dates: start: 20090728
  3. SEPAMIT R [Concomitant]
     Indication: HYPERTENSION
     Dosage: 1 IN 1 DAY PRN
     Route: 048
     Dates: start: 20100531
  4. IRINOTECAN HCL [Concomitant]
     Indication: COLON CANCER
     Dosage: 28JUL-11AUG2009(200MG) 8SEP2009(120MG)ONCE BIWEEKLY INCLUDING SKIPPED WEEK
     Route: 042
     Dates: start: 20090728
  5. MUCOSTA [Concomitant]
     Indication: GASTRITIS PROPHYLAXIS
     Dosage: TABS
     Route: 048
     Dates: start: 20090414
  6. LASIX [Concomitant]
     Indication: OEDEMA
     Dosage: TABS
     Route: 048
     Dates: start: 20100510
  7. TAMSULOSIN HCL [Concomitant]
     Indication: DYSURIA
     Dosage: TABS
     Route: 048
     Dates: start: 20090622, end: 20110414
  8. NEUTROGIN [Concomitant]
     Dosage: 18-22AUG09 20-22AUG09
     Route: 042
     Dates: start: 20090818, end: 20090822
  9. PROCHLORPERAZINE [Concomitant]
     Indication: ANTIEMETIC SUPPORTIVE CARE
     Dosage: TABS
     Route: 048
  10. LOPERAMIDE HCL [Concomitant]
     Indication: DIARRHOEA
     Dosage: CAPS
     Route: 048
     Dates: start: 20100907
  11. POLARAMINE [Concomitant]
     Indication: PREMEDICATION
     Dosage: INCLUDING SKIPPED WEEK
     Route: 042
     Dates: start: 20090728
  12. DEXAMETHASONE SODIUM PHOSPHATE [Concomitant]
     Indication: PREMEDICATION
     Route: 042
     Dates: start: 20090728
  13. MAGNESIUM SULFATE [Concomitant]
     Indication: CONSTIPATION
     Route: 048
     Dates: start: 20090324
  14. LOXONIN [Concomitant]
     Indication: ANALGESIC THERAPY
     Dosage: TABS
     Route: 048
     Dates: start: 20090414
  15. PURSENNID [Concomitant]
     Indication: CONSTIPATION
     Route: 048
     Dates: start: 20091201

REACTIONS (1)
  - PULMONARY ARTERY THROMBOSIS [None]
